FAERS Safety Report 5911444-0 (Version None)
Quarter: 2008Q4

REPORT INFORMATION
  Report Type: 
  Country: None (occurrence: None)
  Receive Date: 20081007
  Receipt Date: 20080923
  Transmission Date: 20090506
  Serious: Yes (Other)
  Sender: FDA-Public Use
  Company Number: US-ELI_LILLY_AND_COMPANY-US200809005119

PATIENT
  Sex: Female

DRUGS (1)
  1. EVISTA [Suspect]
     Dosage: UNK, DAILY (1/D)
     Route: 065
     Dates: start: 19880901

REACTIONS (2)
  - CARDIAC FAILURE CONGESTIVE [None]
  - CARDIAC FLUTTER [None]
